FAERS Safety Report 10907173 (Version 1)
Quarter: 2015Q1

REPORT INFORMATION
  Report Type: Spontaneous
  Country: US (occurrence: None)
  Receive Date: 20150309
  Receipt Date: 20150309
  Transmission Date: 20150721
  Serious: Yes (Other)
  Sender: FDA-Public Use
  Company Number: None

PATIENT
  Age: 62 Year
  Sex: Male
  Weight: 97.52 kg

DRUGS (6)
  1. TAMIFLU [Suspect]
     Active Substance: OSELTAMIVIR PHOSPHATE
     Indication: INFLUENZA
     Route: 048
     Dates: start: 20150214, end: 20150223
  2. VITAMIN D [Concomitant]
     Active Substance: CHOLECALCIFEROL
  3. LIPITOR [Concomitant]
     Active Substance: ATORVASTATIN CALCIUM
  4. BCOMPLEX [Concomitant]
  5. NORVASC [Concomitant]
     Active Substance: AMLODIPINE BESYLATE
  6. COQ10 [Concomitant]
     Active Substance: UBIDECARENONE

REACTIONS (1)
  - Paronychia [None]

NARRATIVE: CASE EVENT DATE: 20150214
